FAERS Safety Report 7018962-5 (Version None)
Quarter: 2010Q3

REPORT INFORMATION
  Report Type: 
  Country: None (occurrence: None)
  Receive Date: 20100928
  Receipt Date: 20100920
  Transmission Date: 20110219
  Serious: No
  Sender: FDA-Public Use
  Company Number: US-B.I. PHARMACEUTICALS,INC./RIDGEFIELD-2010-BP-10657BP

PATIENT
  Sex: Female

DRUGS (3)
  1. MOBIC [Suspect]
     Indication: ARTHRITIS
     Route: 048
     Dates: start: 20100908, end: 20100914
  2. ORACEA [Concomitant]
     Indication: ROSACEA
  3. CLARITIN [Concomitant]
     Indication: HYPERSENSITIVITY

REACTIONS (1)
  - FEELING ABNORMAL [None]
